FAERS Safety Report 10202301 (Version 3)
Quarter: 2014Q4

REPORT INFORMATION
  Report Type: Report from Study
  Country: JP (occurrence: JP)
  Receive Date: 20140528
  Receipt Date: 20141208
  Transmission Date: 20150528
  Serious: Yes (Death, Hospitalization, Other)
  Sender: FDA-Public Use
  Company Number: JP-GILEAD-2014-0103150

PATIENT
  Age: 77 Year
  Sex: Female
  Weight: 49 kg

DRUGS (10)
  1. NU-LOTAN [Concomitant]
     Active Substance: LOSARTAN POTASSIUM
     Indication: PULMONARY ARTERIAL HYPERTENSION
     Route: 048
     Dates: start: 20121107, end: 20121114
  2. FERROMIA [Concomitant]
     Active Substance: FERROUS CITRATE
     Route: 048
     Dates: end: 20130807
  3. GRAN [Concomitant]
     Active Substance: FILGRASTIM
     Route: 051
     Dates: start: 20121218, end: 20121218
  4. ADCIRCA [Concomitant]
     Active Substance: TADALAFIL
     Indication: PULMONARY ARTERIAL HYPERTENSION
     Route: 048
     Dates: start: 20121115, end: 20130807
  5. LOSARTAN [Concomitant]
     Active Substance: LOSARTAN
  6. FUROSEMIDE. [Concomitant]
     Active Substance: FUROSEMIDE
     Indication: PULMONARY ARTERIAL HYPERTENSION
     Route: 048
     Dates: end: 20130417
  7. AMBRISENTAN [Suspect]
     Active Substance: AMBRISENTAN
     Indication: PULMONARY ARTERIAL HYPERTENSION
     Dosage: 5 MG, QD
     Route: 048
     Dates: start: 20121107, end: 20130807
  8. LUPRAC [Concomitant]
     Active Substance: TORSEMIDE
     Indication: PULMONARY ARTERIAL HYPERTENSION
     Route: 048
     Dates: start: 20130420, end: 20130807
  9. FUROSEMIDE. [Concomitant]
     Active Substance: FUROSEMIDE
     Route: 042
     Dates: start: 20130619, end: 20130816
  10. ALDACTONE [Concomitant]
     Active Substance: SPIRONOLACTONE
     Indication: PULMONARY ARTERIAL HYPERTENSION
     Route: 048
     Dates: start: 20121107, end: 20121114

REACTIONS (5)
  - Cardiac failure [Fatal]
  - Septic embolus [Fatal]
  - Staphylococcal infection [Fatal]
  - Endocarditis [Recovered/Resolved]
  - Fluid retention [Fatal]

NARRATIVE: CASE EVENT DATE: 20130412
